FAERS Safety Report 8764533 (Version 1)
Quarter: 2012Q4

REPORT INFORMATION
  Report Type: 
  Country: ZA (occurrence: ZA)
  Receive Date: 20120831
  Receipt Date: 20120831
  Transmission Date: 20130627
  Serious: Yes (Life-Threatening, Hospitalization)
  Sender: FDA-Public Use
  Company Number: US-BAXTER-2012BAX015239

PATIENT
  Age: 28 Year
  Sex: Male
  Weight: 75.8 kg

DRUGS (5)
  1. ENDOXAN VIAL 1G [Suspect]
     Indication: RHABDOMYOSARCOMA
     Route: 041
     Dates: start: 20120613
  2. MESNA [Suspect]
     Indication: RHABDOMYOSARCOMA
     Route: 065
     Dates: start: 20120613
  3. COSMEGEN [Suspect]
     Indication: RHABDOMYOSARCOMA
     Route: 041
     Dates: start: 20120613, end: 20120616
  4. VINCRISTINE [Suspect]
     Indication: RHABDOMYOSARCOMA
     Route: 041
     Dates: start: 20120613
  5. ADRIAMYCIN [Suspect]
     Indication: RHABDOMYOSARCOMA
     Route: 041
     Dates: start: 20120613

REACTIONS (4)
  - Renal impairment [Recovered/Resolved with Sequelae]
  - Stevens-Johnson syndrome [Recovered/Resolved with Sequelae]
  - Febrile neutropenia [Recovered/Resolved with Sequelae]
  - Hypertension [Unknown]
